FAERS Safety Report 15346792 (Version 2)
Quarter: 2018Q3

REPORT INFORMATION
  Report Type: Spontaneous
  Country: ES (occurrence: ES)
  Receive Date: 20180904
  Receipt Date: 20180914
  Transmission Date: 20181010
  Serious: Yes (Death, Hospitalization, Other)
  Sender: FDA-Public Use
  Company Number: ES-EMD SERONO-9033607

PATIENT
  Age: 48 Year
  Sex: Female

DRUGS (8)
  1. REBIF [Suspect]
     Active Substance: INTERFERON BETA-1A
     Indication: MULTIPLE SCLEROSIS
     Route: 058
     Dates: start: 20120529, end: 20180221
  2. CALCITRIOL. [Concomitant]
     Active Substance: CALCITRIOL
     Indication: PRODUCT USED FOR UNKNOWN INDICATION
  3. ESCITALOPRAM [Concomitant]
     Active Substance: ESCITALOPRAM OXALATE
     Indication: PRODUCT USED FOR UNKNOWN INDICATION
     Route: 048
  4. CALCIUM CARBONATE. [Concomitant]
     Active Substance: CALCIUM CARBONATE
     Indication: PRODUCT USED FOR UNKNOWN INDICATION
     Route: 048
  5. PARACETAMOL [Concomitant]
     Active Substance: ACETAMINOPHEN
     Indication: PRODUCT USED FOR UNKNOWN INDICATION
  6. INTERFERON BETA?1A [Concomitant]
     Active Substance: INTERFERON BETA-1A
     Indication: PRODUCT USED FOR UNKNOWN INDICATION
     Route: 058
  7. EUTIROX [Concomitant]
     Active Substance: LEVOTHYROXINE SODIUM
     Indication: PRODUCT USED FOR UNKNOWN INDICATION
     Route: 048
  8. ALPRAZOLAM. [Concomitant]
     Active Substance: ALPRAZOLAM
     Indication: PRODUCT USED FOR UNKNOWN INDICATION
     Route: 048

REACTIONS (43)
  - Cardiac failure [Unknown]
  - Hypertensive crisis [Unknown]
  - Ophthalmoplegia [Unknown]
  - Anaemia [Fatal]
  - Fall [Unknown]
  - Respiratory tract infection [Unknown]
  - Device related infection [Unknown]
  - Acute coronary syndrome [Unknown]
  - Renal failure [Fatal]
  - Confusional state [Fatal]
  - Mitral valve sclerosis [Unknown]
  - Pain [Unknown]
  - Nystagmus [Unknown]
  - Hepatomegaly [Unknown]
  - Multiple sclerosis [Unknown]
  - Anxiety [Unknown]
  - Contusion [Unknown]
  - Cerebral haematoma [Unknown]
  - Multiple sclerosis relapse [Unknown]
  - Bundle branch block left [Unknown]
  - Left atrial dilatation [Unknown]
  - Haematoma [Unknown]
  - Thrombotic thrombocytopenic purpura [Fatal]
  - Humerus fracture [Unknown]
  - Acute pulmonary oedema [Recovered/Resolved]
  - Left ventricular hypertrophy [Unknown]
  - Mobility decreased [Unknown]
  - Rhabdomyolysis [Fatal]
  - Pleural effusion [Unknown]
  - Ataxia [Unknown]
  - Hypercholesterolaemia [Unknown]
  - Respiratory failure [Unknown]
  - Hypoparathyroidism [Unknown]
  - Gastroenteritis [Unknown]
  - Urinary tract infection [Unknown]
  - Dehydration [Unknown]
  - Malaise [Unknown]
  - Haemolytic uraemic syndrome [Fatal]
  - Platelet count decreased [Fatal]
  - Syncope [Unknown]
  - Diarrhoea [Unknown]
  - Aortic valve sclerosis [Unknown]
  - Hyperreflexia [Unknown]

NARRATIVE: CASE EVENT DATE: 201207
